FAERS Safety Report 5661626-0 (Version None)
Quarter: 2008Q1

REPORT INFORMATION
  Report Type: 
  Country: None (occurrence: None)
  Receive Date: 20080312
  Receipt Date: 20080304
  Transmission Date: 20080703
  Serious: Yes (Hospitalization, Other)
  Sender: FDA-Public Use
  Company Number: AU-AVENTIS-200812058GDDC

PATIENT
  Age: 50 Year
  Sex: Male

DRUGS (2)
  1. LANTUS [Suspect]
     Route: 058
     Dates: start: 20070201
  2. AUTOPEN INSULIN INJECTION PEN [Suspect]

REACTIONS (2)
  - HYPOGLYCAEMIA [None]
  - UMBILICAL HERNIA [None]
